FAERS Safety Report 4680864-7 (Version None)
Quarter: 2005Q2

REPORT INFORMATION
  Report Type: 
  Country: None (occurrence: None)
  Receive Date: 20050603
  Receipt Date: 20050526
  Transmission Date: 20051028
  Serious: Yes (Life-Threatening)
  Sender: FDA-Public Use
  Company Number: US-KINGPHARMUSA00001-K200500699

PATIENT
  Age: 77 Year
  Sex: Female

DRUGS (11)
  1. ALTACE [Suspect]
     Indication: MYOCARDIAL ISCHAEMIA
     Dosage: 10 MG, QD
     Route: 048
     Dates: end: 20050319
  2. METFORMIN [Suspect]
     Indication: DIABETES MELLITUS
     Dosage: 2 G, QD
     Route: 048
     Dates: end: 20050319
  3. FRUSEMIDE [Suspect]
     Indication: CARDIAC FAILURE CONGESTIVE
     Dosage: 160 MG, QD
  4. GLICLAZIDE [Suspect]
     Indication: DIABETES MELLITUS
     Dosage: 320 MG, QD
     Dates: end: 20050319
  5. ISOSORBIDE MONONITRATE [Concomitant]
     Indication: MYOCARDIAL ISCHAEMIA
  6. FAMOTIDINE [Concomitant]
     Indication: OESOPHAGEAL DISORDER
  7. DIGOXIN [Concomitant]
     Indication: HEART RATE ABNORMAL
  8. PAROXETINE HYDROCHLORIDE [Concomitant]
     Indication: DEPRESSION
  9. OXAZEPAM [Concomitant]
     Indication: DEPRESSION
  10. PANTOPRAZOLE [Concomitant]
     Indication: OESOPHAGEAL DISORDER
  11. F.G.F. [Concomitant]
     Indication: ANAEMIA

REACTIONS (4)
  - ANOREXIA [None]
  - HYPOGLYCAEMIA [None]
  - LACTIC ACIDOSIS [None]
  - RENAL FAILURE ACUTE [None]
